FAERS Safety Report 25721935 (Version 1)
Quarter: 2025Q3

REPORT INFORMATION
  Report Type: Spontaneous
  Country: GB (occurrence: GB)
  Receive Date: 20250825
  Receipt Date: 20250825
  Transmission Date: 20251021
  Serious: Yes (Hospitalization, Other)
  Sender: REGENERON
  Company Number: GB-SA-2025SA249490

PATIENT
  Age: 84 Year
  Sex: Male

DRUGS (1)
  1. PRALUENT [Suspect]
     Active Substance: ALIROCUMAB
     Indication: Arteriosclerosis coronary artery
     Dosage: 75 MG, QOW, SOLUTION FOR INJECTION
     Route: 058

REACTIONS (1)
  - Angina pectoris [Unknown]

NARRATIVE: CASE EVENT DATE: 20250817
